FAERS Safety Report 7629765-2 (Version None)
Quarter: 2011Q3

REPORT INFORMATION
  Report Type: 
  Country: None (occurrence: None)
  Receive Date: 20110722
  Receipt Date: 20110713
  Transmission Date: 20111222
  Serious: Yes (Hospitalization)
  Sender: FDA-Public Use
  Company Number: JP-ROCHE-790963

PATIENT
  Sex: Female
  Weight: 38.4 kg

DRUGS (17)
  1. TOCILIZUMAB [Suspect]
     Indication: JUVENILE ARTHRITIS
     Route: 042
     Dates: start: 20100325, end: 20100325
  2. PREDNISOLONE [Concomitant]
     Route: 048
     Dates: start: 20100901, end: 20101026
  3. NAPROXEN [Suspect]
     Indication: JUVENILE ARTHRITIS
     Route: 048
  4. ALFAROL [Concomitant]
     Route: 048
  5. PREDNISOLONE [Concomitant]
     Route: 048
     Dates: start: 20100410, end: 20100514
  6. PREDNISOLONE [Concomitant]
     Route: 048
     Dates: start: 20100610, end: 20100831
  7. PREDNISOLONE [Concomitant]
     Route: 048
     Dates: start: 20101027
  8. TOCILIZUMAB [Suspect]
     Route: 042
     Dates: start: 20100402, end: 20110202
  9. PREDNISOLONE [Concomitant]
     Route: 048
     Dates: start: 20100515, end: 20100609
  10. AZULFIDINE [Concomitant]
     Route: 048
     Dates: start: 20050601
  11. FOLIC ACID [Concomitant]
     Route: 048
  12. ITRACONAZOLE [Concomitant]
     Route: 048
     Dates: end: 20100818
  13. TOCILIZUMAB [Suspect]
     Route: 042
     Dates: start: 20110216
  14. METHOTREXATE [Suspect]
     Indication: JUVENILE ARTHRITIS
     Route: 048
     Dates: start: 20090422, end: 20101221
  15. METHOTREXATE [Suspect]
     Route: 048
     Dates: start: 20101222
  16. PREDNISOLONE [Concomitant]
     Route: 048
     Dates: end: 20100401
  17. SULFAMETHOXAZOLE [Concomitant]
     Route: 048

REACTIONS (2)
  - HEPATIC FUNCTION ABNORMAL [None]
  - CALCULUS URINARY [None]
